FAERS Safety Report 8548472 (Version 4)
Quarter: 2013Q1

REPORT INFORMATION
  Report Type: Report from Study
  Country: CA (occurrence: CA)
  Receive Date: 20120507
  Receipt Date: 20130318
  Transmission Date: 20140127
  Serious: Yes (Death, Life-Threatening, Hospitalization)
  Sender: FDA-Public Use
  Company Number: PHHY2012CA037879

PATIENT
  Age: 58 None
  Sex: Male

DRUGS (9)
  1. CLOZARIL [Suspect]
     Indication: SCHIZOPHRENIA
     Dosage: 200 MG, TID
     Route: 048
     Dates: start: 1994
  2. CLOZARIL [Suspect]
     Dosage: UNK
     Dates: start: 20121128
  3. OLANZAPINE [Concomitant]
     Dosage: 20 UKN, QHS
  4. FLURAZEPAM [Concomitant]
     Dosage: 30 UKN, QHS
  5. SERTRALINE [Concomitant]
     Dosage: 50 MG, AT DINNER
  6. XANAX [Concomitant]
     Dosage: 0.5 UKN, BID
  7. LIPITOR [Concomitant]
     Dosage: 20 UKN, DAILY
  8. ARTHROTEC [Concomitant]
     Dosage: 25/100 DAILY
  9. KEMADRIN [Concomitant]
     Dosage: 5 MG, TID

REACTIONS (3)
  - Death [Fatal]
  - Neoplasm malignant [Not Recovered/Not Resolved]
  - Lymphoma [Not Recovered/Not Resolved]
